FAERS Safety Report 13743443 (Version 2)
Quarter: 2017Q3

REPORT INFORMATION
  Report Type: Spontaneous
  Country: US (occurrence: US)
  Receive Date: 20170711
  Receipt Date: 20170814
  Transmission Date: 20171127
  Serious: Yes (Other)
  Sender: FDA-Public Use
  Company Number: US-ALLERGAN-1728538US

PATIENT
  Age: 51 Year
  Sex: Female

DRUGS (1)
  1. DEX UNK [Suspect]
     Active Substance: UNSPECIFIED INGREDIENT
     Indication: UVEITIS
     Dosage: 0.7 MG, SINGLE
     Route: 031

REACTIONS (4)
  - Optic atrophy [Unknown]
  - Retinal detachment [Unknown]
  - Contraindicated product administered [Unknown]
  - Necrotising retinitis [Unknown]
